FAERS Safety Report 6271461 (Version 21)
Quarter: 2013Q4

REPORT INFORMATION
  Report Type: Spontaneous
  Country: US (occurrence: US)
  Receive Date: 20070327
  Receipt Date: 20131030
  Transmission Date: 20140711
  Serious: Yes (Other)
  Sender: FDA-Public Use
  Company Number: PHEH2007US03266

PATIENT
  Age: 56 Year
  Sex: Male

DRUGS (14)
  1. AREDIA [Suspect]
     Dosage: 90 MG
     Dates: start: 200112
  2. ZOMETA [Suspect]
     Dates: start: 200212, end: 200508
  3. PROTONIX ^PHARMACIA^ [Concomitant]
  4. DIFLUCAN [Concomitant]
  5. EPOGEN [Concomitant]
     Dates: start: 200112
  6. ATIVAN [Concomitant]
     Dates: start: 20100601
  7. DECADRON [Concomitant]
     Dates: start: 20100507
  8. REVLIMID [Concomitant]
     Dates: start: 20100507
  9. VIAGRA [Concomitant]
     Dates: start: 20091105
  10. VITAMIN C [Concomitant]
     Route: 048
  11. PNEUMOVAX [Concomitant]
     Dates: start: 2004
  12. BORTEZOMIB [Concomitant]
  13. SODIUM CHLORIDE [Concomitant]
  14. ACYCLOVIR [Concomitant]
     Dosage: 400 MG, BID
     Route: 048

REACTIONS (75)
  - Basal cell carcinoma [Recovered/Resolved]
  - Second primary malignancy [Unknown]
  - Rectal haemorrhage [Recovered/Resolved]
  - Pancytopenia [Recovered/Resolved]
  - Angina unstable [Unknown]
  - Sinus bradycardia [Unknown]
  - Emphysema [Unknown]
  - Plasmacytosis [Unknown]
  - Chronic obstructive pulmonary disease [Unknown]
  - Dyspnoea [Unknown]
  - Marrow hyperplasia [Unknown]
  - Herpes zoster [Unknown]
  - Renal failure [Unknown]
  - Creatinine renal clearance decreased [Unknown]
  - Osteonecrosis of jaw [Recovered/Resolved]
  - General physical health deterioration [Unknown]
  - Pain [Unknown]
  - Anxiety [Unknown]
  - Decreased interest [Unknown]
  - Impaired healing [Unknown]
  - Thrombocytopenia [Recovered/Resolved]
  - Sciatica [Recovered/Resolved]
  - Erectile dysfunction [Unknown]
  - Polyp [Unknown]
  - Haemodilution [Unknown]
  - Dental caries [Unknown]
  - Spinal osteoarthritis [Unknown]
  - Anaemia [Recovered/Resolved]
  - Erythema [Unknown]
  - Pruritus [Unknown]
  - Arthralgia [Unknown]
  - Hypertension [Unknown]
  - Constipation [Unknown]
  - Device occlusion [Unknown]
  - Skin lesion [Unknown]
  - Atrial fibrillation [Unknown]
  - Mitral valve incompetence [Unknown]
  - Hyperlipidaemia [Unknown]
  - Heart valve incompetence [Unknown]
  - Intervertebral disc disorder [Unknown]
  - Oedema peripheral [Unknown]
  - Edentulous [Unknown]
  - Polyneuropathy [Unknown]
  - Neuropathy peripheral [Unknown]
  - Lordosis [Unknown]
  - Intervertebral disc space narrowing [Unknown]
  - Arteriosclerosis [Unknown]
  - Aortic calcification [Unknown]
  - Neuralgia [Unknown]
  - Sensory disturbance [Unknown]
  - Balance disorder [Unknown]
  - Neurotoxicity [Unknown]
  - Toxicity to various agents [Unknown]
  - Hypogammaglobulinaemia [Unknown]
  - Muscle spasms [Unknown]
  - Abdominal distension [Unknown]
  - Pain in extremity [Unknown]
  - Back pain [Unknown]
  - Gastrointestinal haemorrhage [Unknown]
  - Hypoaesthesia [Unknown]
  - Eye pruritus [Unknown]
  - Rash [Unknown]
  - Decreased appetite [Unknown]
  - Fatigue [Unknown]
  - Nausea [Unknown]
  - Paraesthesia [Unknown]
  - Lymphadenopathy [Unknown]
  - Stomatitis [Unknown]
  - Dyspepsia [Unknown]
  - Chest pain [Unknown]
  - Osteoarthritis [Unknown]
  - Phlebolith [Unknown]
  - Candida infection [Unknown]
  - Pain in jaw [Unknown]
  - Libido decreased [Unknown]
